FAERS Safety Report 9108609 (Version 1)
Quarter: 2013Q1

REPORT INFORMATION
  Report Type: Spontaneous
  Country: US (occurrence: US)
  Receive Date: 20130222
  Receipt Date: 20130222
  Transmission Date: 20140127
  Serious: No
  Sender: FDA-Public Use
  Company Number: US-BAYER-2013-017888

PATIENT
  Age: 60 Year
  Sex: Female
  Weight: 87.08 kg

DRUGS (7)
  1. PHILLIPS^ COLON HEALTH [Suspect]
     Indication: CONSTIPATION
     Dosage: 1 DF, QD WITH FOOD
     Route: 048
     Dates: start: 20130122
  2. ALEVE CAPLET/TABLET,MIDOL EXTENDED RELIEF CAPLET [Suspect]
     Indication: ARTHRITIS
     Dosage: 1 DF, PRN
     Route: 048
     Dates: start: 2005, end: 2005
  3. VICODIN [Concomitant]
     Dosage: UNK
  4. XANAX XR [Concomitant]
     Dosage: UNK
  5. STOOL SOFTENER [Concomitant]
     Dosage: UNK
  6. ZOFRAN [Concomitant]
     Dosage: UNK
  7. VOLTAREN EMULGEL [Concomitant]
     Dosage: UNK

REACTIONS (5)
  - Local swelling [None]
  - Joint swelling [None]
  - Myalgia [None]
  - Tinnitus [None]
  - Joint swelling [None]
